FAERS Safety Report 7148612-9 (Version None)
Quarter: 2010Q4

REPORT INFORMATION
  Report Type: 
  Country: None (occurrence: None)
  Receive Date: 20101209
  Receipt Date: 20100812
  Transmission Date: 20110411
  Serious: No
  Sender: FDA-Public Use
  Company Number: A0864368A

PATIENT
  Age: 64 Year
  Sex: Male

DRUGS (2)
  1. AVANDAMET [Suspect]
     Route: 065
  2. GLIPIZIDE [Suspect]
     Route: 065

REACTIONS (2)
  - BLOOD GLUCOSE FLUCTUATION [None]
  - PRODUCT QUALITY ISSUE [None]
